FAERS Safety Report 12896621 (Version 1)
Quarter: 2016Q4

REPORT INFORMATION
  Report Type: Spontaneous
  Country: US (occurrence: US)
  Receive Date: 20161028
  Receipt Date: 20161028
  Transmission Date: 20170207
  Serious: Yes (Other)
  Sender: FDA-Public Use
  Company Number: None

PATIENT
  Age: 65 Year
  Sex: Female
  Weight: 77.4 kg

DRUGS (6)
  1. VITAMIN D [Concomitant]
     Active Substance: CHOLECALCIFEROL
  2. CARVEDILOL. [Concomitant]
     Active Substance: CARVEDILOL
  3. TYLENOL [Concomitant]
     Active Substance: ACETAMINOPHEN
  4. SPIRONOLATONE [Suspect]
     Active Substance: SPIRONOLACTONE
     Indication: CARDIAC FAILURE
     Dosage: ?          QUANTITY:30 TABLET(S);?
     Route: 048
     Dates: start: 20160708, end: 20161026
  5. SPIRONOLATONE [Suspect]
     Active Substance: SPIRONOLACTONE
     Indication: MYOCARDIAL INFARCTION
     Dosage: ?          QUANTITY:30 TABLET(S);?
     Route: 048
     Dates: start: 20160708, end: 20161026
  6. ATORVASTATIN [Concomitant]
     Active Substance: ATORVASTATIN

REACTIONS (6)
  - Blood urine present [None]
  - Breast pain [None]
  - Diarrhoea [None]
  - Breast enlargement [None]
  - Bladder pain [None]
  - Abdominal pain upper [None]

NARRATIVE: CASE EVENT DATE: 20161010
